FAERS Safety Report 7302910-4 (Version None)
Quarter: 2011Q1

REPORT INFORMATION
  Report Type: 
  Country: None (occurrence: None)
  Receive Date: 20110218
  Receipt Date: 20110209
  Transmission Date: 20110831
  Serious: Yes (Other)
  Sender: FDA-Public Use
  Company Number: GB-ASTRAZENECA-2011SE07744

PATIENT
  Age: 50 Year
  Sex: Female
  Weight: 76 kg

DRUGS (12)
  1. LANSOPRAZOLE [Concomitant]
  2. TRAMADOL HYDROCHLORIDE [Concomitant]
  3. BUSCOPAN [Concomitant]
  4. MEROPENEM [Suspect]
     Indication: URINARY TRACT INFECTION
     Route: 042
     Dates: start: 20110128, end: 20110130
  5. CIPROFLOXACIN [Concomitant]
  6. ELLESTE-SOLO [Concomitant]
  7. MEROPENEM [Suspect]
     Indication: PYELONEPHRITIS
     Route: 042
     Dates: start: 20110128, end: 20110130
  8. FRAGMIN [Concomitant]
  9. MORPHINE [Concomitant]
  10. PARACETAMOL [Concomitant]
  11. LACTULOSE [Concomitant]
  12. TRIMETHOPRIM [Concomitant]

REACTIONS (2)
  - URTICARIA [None]
  - DRUG HYPERSENSITIVITY [None]
